FAERS Safety Report 9686430 (Version 1)
Quarter: 2013Q4

REPORT INFORMATION
  Report Type: Spontaneous
  Country: US (occurrence: US)
  Receive Date: 20131113
  Receipt Date: 20131113
  Transmission Date: 20140711
  Serious: Yes (Other)
  Sender: FDA-Public Use
  Company Number: US-MALLINCKRODT-T201304782

PATIENT
  Age: 37 Year
  Sex: Female

DRUGS (3)
  1. OXYCODONE [Suspect]
     Indication: PRODUCT USED FOR UNKNOWN INDICATION
     Route: 045
  2. METHADOSE [Suspect]
     Indication: PRODUCT USED FOR UNKNOWN INDICATION
     Route: 045
  3. HYDROCODONE BITARTRATE [Suspect]
     Indication: PRODUCT USED FOR UNKNOWN INDICATION
     Route: 045

REACTIONS (6)
  - Drug abuse [Unknown]
  - Nasal septum perforation [Unknown]
  - Fungal infection [Unknown]
  - Rhinitis [Unknown]
  - Nasal obstruction [Unknown]
  - Nasal mucosal disorder [Unknown]
